FAERS Safety Report 25228887 (Version 1)
Quarter: 2025Q2

REPORT INFORMATION
  Report Type: Report from Study
  Country: US (occurrence: US)
  Receive Date: 20250423
  Receipt Date: 20250423
  Transmission Date: 20250716
  Serious: Yes (Other)
  Sender: ALEXION PHARMACEUTICALS
  Company Number: US-AstraZeneca-CH-00851935A

PATIENT

DRUGS (1)
  1. OLAPARIB [Suspect]
     Active Substance: OLAPARIB
     Route: 065

REACTIONS (11)
  - Back pain [Unknown]
  - Decreased appetite [Unknown]
  - Nausea [Unknown]
  - Peripheral swelling [Unknown]
  - Thrombosis [Unknown]
  - Cough [Unknown]
  - Alopecia [Unknown]
  - Fatigue [Unknown]
  - Illness [Unknown]
  - Joint stiffness [Unknown]
  - Unevaluable event [Unknown]
